FAERS Safety Report 23332171 (Version 1)
Quarter: 2023Q4

REPORT INFORMATION
  Report Type: Spontaneous
  Country: US (occurrence: US)
  Receive Date: 20231222
  Receipt Date: 20231222
  Transmission Date: 20240110
  Serious: No
  Sender: FDA-Public Use
  Company Number: US-PFIZER INC-PV202300177114

PATIENT
  Age: 74 Year
  Sex: Female
  Weight: 63.492 kg

DRUGS (9)
  1. INLYTA [Suspect]
     Active Substance: AXITINIB
     Dosage: 5 MG 2/DAY
     Dates: start: 2023
  2. INLYTA [Suspect]
     Active Substance: AXITINIB
     Dosage: 5 MG, DAILY
     Dates: start: 202309, end: 20231117
  3. KRILL OIL [Concomitant]
     Active Substance: DIETARY SUPPLEMENT\KRILL OIL
     Dosage: 500 MG
  4. ECOTRIN [Concomitant]
     Active Substance: ASPIRIN
     Dosage: UNK (325)
  5. CENTRUM SILVER [ASCORBIC ACID;BIOTIN;CALCIUM;CALCIUM PANTOTHENATE;CHLO [Concomitant]
     Dosage: UNK
  6. FLUOXETINE [Concomitant]
     Active Substance: FLUOXETINE HYDROCHLORIDE
     Dosage: 20 MG
  7. LEVOTHYROXINE [Concomitant]
     Active Substance: LEVOTHYROXINE
     Dosage: 88 MG
  8. ROSUVASTATIN [Concomitant]
     Active Substance: ROSUVASTATIN
     Dosage: 20 MG
  9. HYDROCORTISONE [Concomitant]
     Active Substance: HYDROCORTISONE
     Dosage: 10 MG AM 5 MG PM

REACTIONS (2)
  - Nausea [Recovered/Resolved]
  - Diarrhoea [Recovered/Resolved]

NARRATIVE: CASE EVENT DATE: 20230101
